FAERS Safety Report 18431577 (Version 1)
Quarter: 2020Q4

REPORT INFORMATION
  Report Type: Spontaneous
  Country: US (occurrence: US)
  Receive Date: 20201027
  Receipt Date: 20201027
  Transmission Date: 20210114
  Serious: Yes (Life-Threatening, Hospitalization, Other)
  Sender: FDA-Public Use
  Company Number: None

PATIENT
  Age: 71 Year
  Sex: Male
  Weight: 56.7 kg

DRUGS (22)
  1. REMDESIVIR. [Suspect]
     Active Substance: REMDESIVIR
     Indication: COVID-19
     Dosage: ?          OTHER FREQUENCY:ONCE;?
     Route: 042
     Dates: start: 20201017, end: 20201019
  2. DILTIAZEM. [Concomitant]
     Active Substance: DILTIAZEM
     Dates: start: 20201017, end: 20201018
  3. HEPARIN [Concomitant]
     Active Substance: HEPARIN SODIUM
     Dates: start: 20201018, end: 20201019
  4. PHENYLEPHRINE [Concomitant]
     Active Substance: PHENYLEPHRINE HYDROCHLORIDE
     Dates: start: 20201017, end: 20201019
  5. EPINEPHRINE. [Concomitant]
     Active Substance: EPINEPHRINE
     Dates: start: 20201017, end: 20201019
  6. NOREPINEPHRINE. [Concomitant]
     Active Substance: NOREPINEPHRINE
     Dates: start: 20201017, end: 20201019
  7. VASOPRESSIN. [Concomitant]
     Active Substance: VASOPRESSIN
     Dates: start: 20201017, end: 20201017
  8. FUROSEMIDE. [Concomitant]
     Active Substance: FUROSEMIDE
     Dates: start: 20201017, end: 20201017
  9. AMIODARONE [Concomitant]
     Active Substance: AMIODARONE
     Dates: start: 20201018, end: 20201019
  10. CHLORHEXIDINE [Concomitant]
     Active Substance: CHLORHEXIDINE
     Dates: start: 20201017, end: 20201019
  11. LINEZOLID. [Concomitant]
     Active Substance: LINEZOLID
     Dates: start: 20201017, end: 20201017
  12. METHYLPREDNISOLONE. [Concomitant]
     Active Substance: METHYLPREDNISOLONE
     Dates: start: 20201017, end: 20201019
  13. ALBUTEROL. [Concomitant]
     Active Substance: ALBUTEROL
     Dates: start: 20201017, end: 20201019
  14. BUDESONIDE/FORMOTEROL [Concomitant]
     Active Substance: BUDESONIDE\FORMOTEROL
     Dates: start: 20201017, end: 20201019
  15. CALCIUM GLUCONATE. [Concomitant]
     Active Substance: CALCIUM GLUCONATE
     Dates: start: 20201017, end: 20201018
  16. CEFEPIME [Concomitant]
     Active Substance: CEFEPIME HYDROCHLORIDE
     Dates: start: 20201017, end: 20201017
  17. CITRATE PHOSPHATE DEXTROSE [Concomitant]
     Active Substance: CITRATE PHOSPHATE DEXTROSE
     Dates: start: 20201017, end: 20201018
  18. FAMOTIDINE. [Concomitant]
     Active Substance: FAMOTIDINE
     Dates: start: 20201017, end: 20201019
  19. INSULIN ASPART [Concomitant]
     Active Substance: INSULIN ASPART
     Dates: start: 20201017, end: 20201019
  20. VANCOMYCIN [Concomitant]
     Active Substance: VANCOMYCIN
     Dates: start: 20201017, end: 20201018
  21. DEXAMETHASONE. [Concomitant]
     Active Substance: DEXAMETHASONE
     Dates: start: 20201017, end: 20201017
  22. MEROPENEM. [Concomitant]
     Active Substance: MEROPENEM
     Dates: start: 20201017, end: 20201019

REACTIONS (2)
  - Hepatic enzyme increased [None]
  - Malaise [None]

NARRATIVE: CASE EVENT DATE: 20201018
